FAERS Safety Report 14268294 (Version 1)
Quarter: 2017Q4

REPORT INFORMATION
  Report Type: Spontaneous
  Country: US (occurrence: US)
  Receive Date: 20171211
  Receipt Date: 20171211
  Transmission Date: 20180321
  Serious: Yes (Disabling)
  Sender: FDA-Public Use
  Company Number: None

PATIENT
  Age: 50 Year
  Sex: Female
  Weight: 56.25 kg

DRUGS (5)
  1. LORAZEPAM. [Concomitant]
     Active Substance: LORAZEPAM
  2. VITAMIN D [Concomitant]
     Active Substance: CHOLECALCIFEROL
  3. ZYRTEC [Concomitant]
     Active Substance: CETIRIZINE HYDROCHLORIDE
  4. DAILY MULTIVITAMIN [Concomitant]
     Active Substance: VITAMINS
  5. DIAMOX SEQUELS [Suspect]
     Active Substance: ACETAZOLAMIDE
     Indication: INTRACRANIAL PRESSURE INCREASED
     Route: 048

REACTIONS (22)
  - Cough [None]
  - Lip swelling [None]
  - Rash [None]
  - Tinnitus [None]
  - Suicidal ideation [None]
  - Paraesthesia [None]
  - Type IV hypersensitivity reaction [None]
  - Pain of skin [None]
  - Nausea [None]
  - Apparent death [None]
  - Erythema [None]
  - Pyrexia [None]
  - Neuropathy peripheral [None]
  - Erythromelalgia [None]
  - Skin burning sensation [None]
  - Tremor [None]
  - Peripheral swelling [None]
  - Diarrhoea [None]
  - Anxiety [None]
  - Swollen tongue [None]
  - Fatigue [None]
  - Feeling hot [None]

NARRATIVE: CASE EVENT DATE: 20160428
